FAERS Safety Report 5079327-9 (Version None)
Quarter: 2006Q3

REPORT INFORMATION
  Report Type: 
  Country: None (occurrence: None)
  Receive Date: 20060809
  Receipt Date: 20060712
  Transmission Date: 20061208
  Serious: Yes (Death, Hospitalization, Other)
  Sender: FDA-Public Use
  Company Number: 2006053461

PATIENT
  Age: 67 Year
  Sex: Female
  Weight: 89.8122 kg

DRUGS (1)
  1. BEXTRA [Suspect]
     Indication: PAIN
     Dosage: 10 MG (10 MG, 1 IN 1 D), UNKNOWN

REACTIONS (1)
  - CEREBROVASCULAR ACCIDENT [None]
